FAERS Safety Report 16918047 (Version 2)
Quarter: 2019Q4

REPORT INFORMATION
  Report Type: Spontaneous
  Country: US (occurrence: US)
  Receive Date: 20191015
  Receipt Date: 20191108
  Transmission Date: 20200122
  Serious: No
  Sender: FDA-Public Use
  Company Number: US-APOTEX-2019AP022736

PATIENT
  Sex: Male

DRUGS (3)
  1. NICOTINE. [Suspect]
     Active Substance: NICOTINE
     Indication: SMOKING CESSATION THERAPY
     Dosage: UNK (7MG/DAY)
     Route: 062
  2. NICOTINE. [Suspect]
     Active Substance: NICOTINE
     Indication: SMOKING CESSATION THERAPY
     Dosage: UNK (2-14 ?G)
     Route: 062
  3. NICOTINE. [Suspect]
     Active Substance: NICOTINE
     Dosage: UNK (2-21 ?G )
     Route: 062

REACTIONS (2)
  - Depressed mood [Unknown]
  - Drug ineffective [Unknown]
